FAERS Safety Report 7982503-6 (Version None)
Quarter: 2011Q4

REPORT INFORMATION
  Report Type: 
  Country: None (occurrence: None)
  Receive Date: 20111215
  Receipt Date: 20111208
  Transmission Date: 20120403
  Serious: Yes (Hospitalization, Other)
  Sender: FDA-Public Use
  Company Number: CA-UCBSA-040193

PATIENT
  Age: 45 Year
  Sex: Female
  Weight: 117.9 kg

DRUGS (11)
  1. NEXIUM [Concomitant]
  2. CIMZIA [Suspect]
     Route: 058
     Dates: start: 20101208, end: 20110105
  3. TYLENOL W/ CODEINE [Concomitant]
     Indication: PAIN
  4. CIMZIA [Suspect]
     Route: 058
     Dates: start: 20110119, end: 20110101
  5. CIMZIA [Suspect]
     Indication: RHEUMATOID ARTHRITIS
     Route: 058
     Dates: start: 20110303
  6. MELOXICAM [Concomitant]
     Indication: RHEUMATOID ARTHRITIS
  7. TYLENOL W/ CODEINE [Concomitant]
     Indication: RHEUMATOID ARTHRITIS
  8. CREAM FOR PSORIASIS [Concomitant]
     Indication: PSORIASIS
  9. ATENOLOL [Concomitant]
     Indication: CARDIAC DISORDER
  10. LISINOPRIL [Concomitant]
     Indication: CARDIAC DISORDER
  11. MELOXICAM [Concomitant]
     Indication: PAIN

REACTIONS (3)
  - BACTERIAL INFECTION [None]
  - UROSEPSIS [None]
  - URINARY TRACT INFECTION [None]
